FAERS Safety Report 6095949-0 (Version None)
Quarter: 2009Q1

REPORT INFORMATION
  Report Type: 
  Country: None (occurrence: None)
  Receive Date: 20090227
  Receipt Date: 20080722
  Transmission Date: 20090719
  Serious: No
  Sender: FDA-Public Use
  Company Number: A0738901A

PATIENT
  Age: 48 Year
  Sex: Female

DRUGS (2)
  1. LAMICTAL [Suspect]
     Indication: BIPOLAR DISORDER
     Dosage: 160MG PER DAY
     Route: 048
     Dates: start: 20080101
  2. EFFEXOR [Concomitant]

REACTIONS (1)
  - ADVERSE REACTION [None]
